FAERS Safety Report 18144581 (Version 2)
Quarter: 2020Q4

REPORT INFORMATION
  Report Type: Report from Study
  Country: CO (occurrence: CO)
  Receive Date: 20200813
  Receipt Date: 20201001
  Transmission Date: 20210113
  Serious: Yes (Hospitalization, Other)
  Sender: FDA-Public Use
  Company Number: NVSC2020CO223469

PATIENT
  Age: 67 Year
  Sex: Male
  Weight: 77 kg

DRUGS (3)
  1. LOSARTAN. [Suspect]
     Active Substance: LOSARTAN
     Indication: HYPERTENSION
     Dosage: UNK
     Route: 048
  2. COSENTYX [Suspect]
     Active Substance: SECUKINUMAB
     Indication: PSORIASIS
     Dosage: 300 MG, QMO
     Route: 058
     Dates: start: 20190731
  3. VASELINE PURE [Concomitant]
     Active Substance: PETROLATUM
     Indication: PSORIASIS
     Dosage: UNK
     Route: 003

REACTIONS (5)
  - Diabetes mellitus [Unknown]
  - Skin haemorrhage [Unknown]
  - Skin fissures [Unknown]
  - Gait disturbance [Unknown]
  - Blood glucose increased [Unknown]

NARRATIVE: CASE EVENT DATE: 20200718
